FAERS Safety Report 21640736 (Version 3)
Quarter: 2023Q1

REPORT INFORMATION
  Report Type: Report from Study
  Country: US (occurrence: US)
  Receive Date: 20221124
  Receipt Date: 20230228
  Transmission Date: 20230418
  Serious: Yes (Other)
  Sender: FDA-Public Use
  Company Number: US-TAKEDA-2021TUS073586

PATIENT
  Sex: Female
  Weight: 66 kg

DRUGS (1)
  1. BRIGATINIB [Suspect]
     Active Substance: BRIGATINIB
     Indication: Lung neoplasm malignant
     Dosage: 180 MILLIGRAM, QD
     Route: 048
     Dates: start: 20211009

REACTIONS (4)
  - Lung neoplasm malignant [Unknown]
  - Tearfulness [Unknown]
  - Diarrhoea [Unknown]
  - Drug ineffective [Unknown]
